FAERS Safety Report 15707510 (Version 1)
Quarter: 2018Q4

REPORT INFORMATION
  Report Type: Spontaneous
  Country: US (occurrence: US)
  Receive Date: 20181211
  Receipt Date: 20181211
  Transmission Date: 20190205
  Serious: Yes (Life-Threatening, Hospitalization)
  Sender: FDA-Public Use
  Company Number: US-SCIEGEN PHARMACEUTICALS INC-2018SCILIT00780

PATIENT

DRUGS (10)
  1. ENOXAPARIN [Concomitant]
     Active Substance: ENOXAPARIN
     Indication: PRODUCT USED FOR UNKNOWN INDICATION
     Dosage: 40 MG, DAILY
  2. METOPROLOL. [Concomitant]
     Active Substance: METOPROLOL
     Dosage: UNK
     Route: 065
  3. NOREPINEPHRINE. [Concomitant]
     Active Substance: NOREPINEPHRINE
     Indication: VASOCONSTRICTION
     Dosage: UNKNOWN
     Route: 065
  4. PAROXETINE. [Interacting]
     Active Substance: PAROXETINE
     Indication: ANXIETY
  5. METHYLENE BLUE. [Interacting]
     Active Substance: METHYLENE BLUE
     Indication: VASOCONSTRICTION
     Dosage: 70 MG, UNK
     Route: 065
  6. PAROXETINE. [Interacting]
     Active Substance: PAROXETINE
     Indication: DEPRESSION
     Dosage: 40 MG, DAILY
     Route: 048
  7. METOPROLOL. [Concomitant]
     Active Substance: METOPROLOL
     Indication: ATRIAL FIBRILLATION
     Dosage: 12.5 MG, BID
     Route: 048
  8. METOPROLOL. [Concomitant]
     Active Substance: METOPROLOL
     Dosage: 75 MG, TID
     Route: 065
  9. BUPROPION HYDROCHLORIDE. [Suspect]
     Active Substance: BUPROPION HYDROCHLORIDE
     Indication: ATTENTION DEFICIT/HYPERACTIVITY DISORDER
     Dosage: 75 MG, DAILY
     Route: 065
  10. FENTANYL. [Interacting]
     Active Substance: FENTANYL
     Indication: GENERAL ANAESTHESIA
     Dosage: 1000 MCG, UNKNOWN
     Route: 065

REACTIONS (3)
  - Drug interaction [Recovering/Resolving]
  - Serotonin syndrome [Recovering/Resolving]
  - Product use in unapproved indication [None]
